FAERS Safety Report 6706458-7 (Version None)
Quarter: 2010Q2

REPORT INFORMATION
  Report Type: 
  Country: None (occurrence: None)
  Receive Date: 20100503
  Receipt Date: 20090825
  Transmission Date: 20101027
  Serious: Yes (Other)
  Sender: FDA-Public Use
  Company Number: US-BAYER-200913773BCC

PATIENT
  Sex: Male

DRUGS (2)
  1. ALEVE (CAPLET) [Suspect]
     Indication: DRUG USE FOR UNKNOWN INDICATION
     Dosage: AS USED: 1100 MG  UNIT DOSE: 220 MG
     Route: 048
  2. ALCOHOL [Concomitant]

REACTIONS (1)
  - HALLUCINATION [None]
